FAERS Safety Report 15839057 (Version 2)
Quarter: 2019Q1

REPORT INFORMATION
  Report Type: Report from Study
  Country: US (occurrence: US)
  Receive Date: 20190117
  Receipt Date: 20190201
  Transmission Date: 20190417
  Serious: Yes (Death, Hospitalization, Disabling, Other)
  Sender: FDA-Public Use
  Company Number: US-GILEAD-2018-0380905

PATIENT
  Age: 39 Year
  Sex: Male
  Weight: 107.3 kg

DRUGS (18)
  1. ZOFRAN [Concomitant]
     Active Substance: ONDANSETRON HYDROCHLORIDE
  2. FLUDARABINE [Suspect]
     Active Substance: FLUDARABINE PHOSPHATE
     Indication: BONE MARROW CONDITIONING REGIMEN
     Dosage: 30 MG/M2, QD
     Route: 042
     Dates: start: 20181205, end: 20181207
  3. OXYCODONE [Concomitant]
     Active Substance: OXYCODONE
     Dosage: 5 MG
     Dates: start: 20181213, end: 20181214
  4. AXICABTAGENE CILOLEUCEL [Suspect]
     Active Substance: AXICABTAGENE CILOLEUCEL
     Indication: B-CELL LYMPHOMA
     Dosage: 68 ML, ONCE
     Route: 042
     Dates: start: 20181210, end: 20181210
  5. ALLOPURINOL. [Concomitant]
     Active Substance: ALLOPURINOL
  6. METHOCARBAMOL. [Concomitant]
     Active Substance: METHOCARBAMOL
     Dosage: 500 MG
     Dates: start: 20181213, end: 20181214
  7. DEXAMETHASONE. [Concomitant]
     Active Substance: DEXAMETHASONE
  8. PANTOPRAZOLE [Concomitant]
     Active Substance: PANTOPRAZOLE
  9. MELATONIN [Concomitant]
     Active Substance: MELATONIN
  10. DIPHENHYDRAMINE. [Concomitant]
     Active Substance: DIPHENHYDRAMINE
  11. KYTRIL [Concomitant]
     Active Substance: GRANISETRON HYDROCHLORIDE
  12. LIDOCAINE. [Concomitant]
     Active Substance: LIDOCAINE
  13. MENTHOL. [Concomitant]
     Active Substance: MENTHOL
  14. COMPAZINE [Concomitant]
     Active Substance: PROCHLORPERAZINE MALEATE
  15. DOCUSATE [Concomitant]
     Active Substance: DOCUSATE
  16. POLYETHYLENE GLYCOL [Concomitant]
     Active Substance: POLYETHYLENE GLYCOLS
  17. CYCLOPHOSPHAMIDE. [Suspect]
     Active Substance: CYCLOPHOSPHAMIDE
     Indication: BONE MARROW CONDITIONING REGIMEN
     Dosage: 500 MG/M2, QD
     Route: 042
     Dates: start: 20181205, end: 20181207
  18. ZARXIO [Concomitant]
     Active Substance: FILGRASTIM-SNDZ

REACTIONS (5)
  - Hypotension [Not Recovered/Not Resolved]
  - Cytokine release syndrome [Fatal]
  - Sinus tachycardia [Not Recovered/Not Resolved]
  - Hypoxia [Not Recovered/Not Resolved]
  - Pyrexia [Not Recovered/Not Resolved]

NARRATIVE: CASE EVENT DATE: 20181213
